FAERS Safety Report 5540627-7 (Version None)
Quarter: 2007Q4

REPORT INFORMATION
  Report Type: 
  Country: None (occurrence: None)
  Receive Date: 20071129
  Receipt Date: 20070515
  Transmission Date: 20080405
  Serious: Yes (Other)
  Sender: FDA-Public Use
  Company Number: US200703002434

PATIENT
  Age: 50 Year
  Sex: Male
  Weight: 88.4 kg

DRUGS (5)
  1. ZYPREXA [Suspect]
     Dosage: 20 MG
     Dates: start: 19960101
  2. PROZAC [Concomitant]
  3. CLONAZEPAM [Concomitant]
  4. CELEXA [Concomitant]
  5. ZOLOFT [Concomitant]

REACTIONS (2)
  - DIABETIC KETOACIDOSIS [None]
  - TYPE 2 DIABETES MELLITUS [None]
